FAERS Safety Report 15524958 (Version 4)
Quarter: 2018Q4

REPORT INFORMATION
  Report Type: Spontaneous
  Country: US (occurrence: US)
  Receive Date: 20181018
  Receipt Date: 20181207
  Transmission Date: 20190205
  Serious: No
  Sender: FDA-Public Use
  Company Number: US-PFIZER INC-2018418371

PATIENT
  Age: 72 Year
  Sex: Male

DRUGS (2)
  1. ADVIL LIQUI-GELS [Suspect]
     Active Substance: IBUPROFEN
     Indication: PAIN
  2. ADVIL LIQUI-GELS [Suspect]
     Active Substance: IBUPROFEN
     Indication: MUSCLE RELAXANT THERAPY
     Dosage: 200 MG, AS NEEDED (1 TABLET PER NIGHT AS NEEDED)
     Dates: start: 2016

REACTIONS (3)
  - Product use complaint [Recovering/Resolving]
  - Intentional product misuse [Unknown]
  - Vomiting [Recovering/Resolving]
